FAERS Safety Report 7363454-7 (Version None)
Quarter: 2011Q1

REPORT INFORMATION
  Report Type: 
  Country: None (occurrence: None)
  Receive Date: 20110321
  Receipt Date: 20110308
  Transmission Date: 20110831
  Serious: Yes (Other)
  Sender: FDA-Public Use
  Company Number: US-JNJFOC-20110303887

PATIENT
  Age: 58 Year
  Sex: Female
  Weight: 84.37 kg

DRUGS (12)
  1. LOMOTIL [Concomitant]
  2. LEVEMIR [Concomitant]
     Indication: DIABETES MELLITUS
  3. BENTYL [Concomitant]
  4. SYNTHROID [Concomitant]
  5. BENADRYL [Concomitant]
     Route: 048
  6. POTASSIUM CHLORIDE [Concomitant]
  7. PREDNISONE [Concomitant]
     Indication: CROHN'S DISEASE
  8. GABAPENTIN [Concomitant]
  9. CRESTOR [Concomitant]
  10. REMICADE [Suspect]
     Indication: CROHN'S DISEASE
     Route: 042
  11. GLIMEPIRIDE [Concomitant]
     Indication: DIABETES MELLITUS
  12. MAGNESIUM [Concomitant]

REACTIONS (4)
  - CHEST PAIN [None]
  - INFUSION RELATED REACTION [None]
  - FLUSHING [None]
  - GASTROINTESTINAL HAEMORRHAGE [None]
